FAERS Safety Report 4596513-2 (Version None)
Quarter: 2005Q1

REPORT INFORMATION
  Report Type: 
  Country: None (occurrence: None)
  Receive Date: 20050228
  Receipt Date: 20050218
  Transmission Date: 20050727
  Serious: Yes (Hospitalization)
  Sender: FDA-Public Use
  Company Number: 2005-02-1326

PATIENT
  Age: 64 Year
  Sex: Female

DRUGS (3)
  1. FLUITRAN TABLETS   ^LIKE NAQUA^ [Suspect]
     Indication: HYPERTENSION
     Dosage: 0.5 MG QD ORAL
     Route: 048
     Dates: start: 20050111, end: 20050208
  2. LIPITOR [Suspect]
     Indication: HYPERLIPIDAEMIA
     Dosage: QD ORAL
     Route: 048
     Dates: start: 20041001, end: 20050208
  3. PROBUCOL TABLETS [Concomitant]

REACTIONS (1)
  - HEPATITIS [None]
